FAERS Safety Report 8546025-6 (Version None)
Quarter: 2012Q3

REPORT INFORMATION
  Report Type: 
  Country: None (occurrence: None)
  Receive Date: 20120727
  Receipt Date: 20120717
  Transmission Date: 20120928
  Serious: Yes (Hospitalization)
  Sender: FDA-Public Use
  Company Number: FR-ALLERGAN-1210270US

PATIENT
  Age: 80 Year
  Sex: Male

DRUGS (7)
  1. OXAZEPAM [Suspect]
     Indication: ANXIETY
     Dosage: 1 DF, SINGLE
     Route: 048
     Dates: start: 20100901, end: 20120519
  2. IRBESARTAN AND HYDROCHLOROTHIAZIDE [Concomitant]
  3. LERCANIDIPINE [Concomitant]
  4. TROSPIUM CHLORIDE [Suspect]
     Indication: POLLAKIURIA
     Dosage: 1 DF, QD
     Route: 048
  5. ATORVASTATIN [Concomitant]
  6. ATENOLOL ARROW [Concomitant]
  7. ALFUZOSINE BIOGARAN [Concomitant]

REACTIONS (2)
  - CONFUSIONAL STATE [None]
  - URINARY RETENTION [None]
